FAERS Safety Report 4469012-6 (Version None)
Quarter: 2004Q4

REPORT INFORMATION
  Report Type: 
  Country: None (occurrence: None)
  Receive Date: 20041008
  Receipt Date: 20040927
  Transmission Date: 20050328
  Serious: Yes (Hospitalization, Other)
  Sender: FDA-Public Use
  Company Number: US-JNJFOC-20040806843

PATIENT
  Sex: Female
  Weight: 68.04 kg

DRUGS (13)
  1. DITROPAN XL [Suspect]
     Indication: STRESS INCONTINENCE
     Route: 049
  2. TRAZADENE [Concomitant]
     Dosage: DOSE INCREASED TO 50-150 MG AS NEEDED AT NIGHT
  3. TRAZADENE [Concomitant]
  4. KLONOPEN [Concomitant]
  5. LOPRESSOR [Concomitant]
  6. LEXAPRO [Concomitant]
  7. LEXAPRO [Concomitant]
  8. LEXAPRO [Concomitant]
  9. ALBUTEROL [Concomitant]
     Dosage: AS NEEDED
  10. ALUMINUM HYDROXIDE AND MAGNESIUM TRISILICATE [Concomitant]
  11. ALUMINUM HYDROXIDE AND MAGNESIUM TRISILICATE [Concomitant]
     Dosage: AS NEEDED
  12. TYLENOL [Concomitant]
     Dosage: AS NEEDED
  13. ZYPREXA [Concomitant]

REACTIONS (3)
  - CARDIAC FAILURE CONGESTIVE [None]
  - FLUID RETENTION [None]
  - WEIGHT INCREASED [None]
